FAERS Safety Report 11519944 (Version 1)
Quarter: 2015Q3

REPORT INFORMATION
  Report Type: Spontaneous
  Country: US (occurrence: None)
  Receive Date: 20150917
  Receipt Date: 20150917
  Transmission Date: 20151125
  Serious: Yes (Death, Hospitalization)
  Sender: FDA-Public Use
  Company Number: None

PATIENT
  Age: 72 Year
  Sex: Female
  Weight: 101.15 kg

DRUGS (1)
  1. CORTICOSTEROIDS [Suspect]
     Active Substance: CORTICOSTEROID NOS

REACTIONS (6)
  - Dyspnoea [None]
  - Brain injury [None]
  - Unresponsive to stimuli [None]
  - Incorrect route of drug administration [None]
  - Brain stem stroke [None]
  - Artery dissection [None]

NARRATIVE: CASE EVENT DATE: 20150701
